FAERS Safety Report 9510480 (Version 1)
Quarter: 2013Q3

REPORT INFORMATION
  Report Type: Report from Study
  Country: US (occurrence: US)
  Receive Date: 20130909
  Receipt Date: 20130909
  Transmission Date: 20140515
  Serious: Yes (Other)
  Sender: FDA-Public Use
  Company Number: US-TAKEDA-2013TJP000379

PATIENT
  Sex: 0

DRUGS (5)
  1. LEUPRORELIN ACETATE [Suspect]
     Indication: ENDOMETRIOSIS
     Dosage: ONCE
     Dates: start: 2004
  2. LUPRON DEPOT [Suspect]
     Indication: ENDOMETRIOSIS
     Dosage: 11.25 MG, Q3MONTHS
     Dates: start: 2011, end: 2011
  3. LUPRON DEPOT [Suspect]
     Dosage: UNK
  4. HYDROCODONE [Concomitant]
     Indication: PAIN
     Dosage: AS REQUIRED
  5. VITAMINS [Suspect]
     Indication: PRODUCT USED FOR UNKNOWN INDICATION
     Dosage: UNK, QD

REACTIONS (8)
  - Cholecystectomy [Unknown]
  - Menorrhagia [Not Recovered/Not Resolved]
  - Muscle spasms [Not Recovered/Not Resolved]
  - Endometriosis [Unknown]
  - Hot flush [Unknown]
  - Insomnia [Unknown]
  - Abdominal distension [Unknown]
  - Muscular weakness [Unknown]
